FAERS Safety Report 5611392-X (Version None)
Quarter: 2008Q1

REPORT INFORMATION
  Report Type: 
  Country: None (occurrence: None)
  Receive Date: 20080201
  Receipt Date: 20080123
  Transmission Date: 20080703
  Serious: Yes (Other)
  Sender: FDA-Public Use
  Company Number: US-PFIZER INC-2008007743

PATIENT
  Sex: Female

DRUGS (1)
  1. SULFASALAZINE [Suspect]

REACTIONS (3)
  - DRUG DOSE OMISSION [None]
  - MALABSORPTION [None]
  - MALAISE [None]
